FAERS Safety Report 23055823 (Version 5)
Quarter: 2024Q3

REPORT INFORMATION
  Report Type: Report from Study
  Country: AE (occurrence: None)
  Receive Date: 20231011
  Receipt Date: 20240709
  Transmission Date: 20241017
  Serious: Yes (Hospitalization)
  Sender: ASTRAZENECA
  Company Number: 2023A227262

PATIENT
  Age: 72 Year
  Sex: Female
  Weight: 109 kg

DRUGS (1)
  1. CILGAVIMAB\TIXAGEVIMAB [Suspect]
     Active Substance: CILGAVIMAB\TIXAGEVIMAB
     Indication: COVID-19 treatment
     Dosage: 3.0ML ONCE/SINGLE ADMINISTRATION
     Route: 030
     Dates: start: 20221005

REACTIONS (1)
  - Incisional hernia, obstructive [Recovered/Resolved]

NARRATIVE: CASE EVENT DATE: 20230905
